FAERS Safety Report 8481318-2 (Version None)
Quarter: 2012Q2

REPORT INFORMATION
  Report Type: 
  Country: None (occurrence: None)
  Receive Date: 20120626
  Receipt Date: 20120626
  Transmission Date: 20120825
  Serious: No
  Sender: FDA-Public Use
  Company Number: None

PATIENT
  Age: 91 Year
  Sex: Male
  Weight: 85.7 kg

DRUGS (1)
  1. TAMSULOSIN HCL [Suspect]
     Indication: BENIGN PROSTATIC HYPERPLASIA
     Dosage: 0.4 MG EVERY DAY PO
     Route: 048
     Dates: start: 20111108, end: 20120125

REACTIONS (3)
  - ANGIOEDEMA [None]
  - INJECTION SITE SWELLING [None]
  - DYSPHAGIA [None]
